FAERS Safety Report 7372000-3 (Version None)
Quarter: 2011Q1

REPORT INFORMATION
  Report Type: 
  Country: None (occurrence: None)
  Receive Date: 20110314
  Receipt Date: 20110301
  Transmission Date: 20110831
  Serious: No
  Sender: FDA-Public Use
  Company Number: 028460

PATIENT
  Age: 34 Year
  Sex: Female
  Weight: 63.5 kg

DRUGS (2)
  1. DILANTIN [Concomitant]
  2. KEPPRA [Suspect]
     Indication: CONVULSION
     Dosage: (500 MG BID, FROM: 3YEARS AGO ORAL)
     Route: 048

REACTIONS (2)
  - CONVULSION [None]
  - INAPPROPRIATE SCHEDULE OF DRUG ADMINISTRATION [None]
